FAERS Safety Report 11034502 (Version 2)
Quarter: 2015Q2

REPORT INFORMATION
  Report Type: Spontaneous
  Country: US (occurrence: US)
  Receive Date: 20150415
  Receipt Date: 20150525
  Transmission Date: 20150821
  Serious: No
  Sender: FDA-Public Use
  Company Number: US-JNJFOC-20130708323

PATIENT
  Sex: Female
  Weight: 86.18 kg

DRUGS (2)
  1. ANESTHESIA UNSPECIFIED [Suspect]
     Active Substance: UNSPECIFIED INGREDIENT
     Indication: RENAL STONE REMOVAL
     Route: 065
     Dates: start: 20130413, end: 20130423
  2. XARELTO [Suspect]
     Active Substance: RIVAROXABAN
     Indication: PULMONARY THROMBOSIS
     Dosage: 20MG ONCE DAILY
     Route: 048
     Dates: start: 20130603

REACTIONS (1)
  - Alopecia [Not Recovered/Not Resolved]

NARRATIVE: CASE EVENT DATE: 2013
